FAERS Safety Report 11321235 (Version 1)
Quarter: 2015Q3

REPORT INFORMATION
  Report Type: Spontaneous
  Country: JP (occurrence: JP)
  Receive Date: 20150729
  Receipt Date: 20150729
  Transmission Date: 20151125
  Serious: Yes (Hospitalization)
  Sender: FDA-Public Use
  Company Number: JP-EISAI-201502999

PATIENT
  Age: 20 Year
  Sex: Female

DRUGS (2)
  1. PAXIL [Suspect]
     Active Substance: PAROXETINE HYDROCHLORIDE
     Route: 048
     Dates: start: 20150716, end: 20150716
  2. LUNESTA [Suspect]
     Active Substance: ESZOPICLONE
     Route: 048
     Dates: start: 20150716, end: 20150716

REACTIONS (3)
  - Somnolence [Recovered/Resolved]
  - Overdose [Unknown]
  - Suicide attempt [Unknown]

NARRATIVE: CASE EVENT DATE: 20150716
